FAERS Safety Report 23643161 (Version 1)
Quarter: 2024Q1

REPORT INFORMATION
  Report Type: Spontaneous
  Country: AU (occurrence: AU)
  Receive Date: 20240318
  Receipt Date: 20240318
  Transmission Date: 20240410
  Serious: Yes (Death, Other)
  Sender: FDA-Public Use
  Company Number: AU-PFIZER INC-PV202400035514

PATIENT
  Age: 63 Year
  Sex: Male

DRUGS (1)
  1. AZITHROMYCIN [Suspect]
     Active Substance: AZITHROMYCIN
     Dosage: 500 MG
     Route: 042
     Dates: start: 20131215, end: 20131215

REACTIONS (3)
  - Cardiac arrest [Fatal]
  - Nausea [Fatal]
  - Depressed level of consciousness [Fatal]

NARRATIVE: CASE EVENT DATE: 20131215
